FAERS Safety Report 18637519 (Version 1)
Quarter: 2020Q4

REPORT INFORMATION
  Report Type: Spontaneous
  Country: TH (occurrence: TH)
  Receive Date: 20201219
  Receipt Date: 20201219
  Transmission Date: 20210114
  Serious: Yes (Hospitalization, Other)
  Sender: FDA-Public Use
  Company Number: TH-SUN PHARMACEUTICAL INDUSTRIES LTD-2020R1-271510

PATIENT
  Age: 50 Year
  Sex: Female

DRUGS (4)
  1. DEFERASIROX. [Suspect]
     Active Substance: DEFERASIROX
     Indication: EXCESS IRON CHELATION
     Dosage: 500 MILLIGRAM, BID
     Route: 065
     Dates: start: 2020
  2. DEFERASIROX. [Suspect]
     Active Substance: DEFERASIROX
     Dosage: 500 MILLIGRAM
     Route: 065
     Dates: start: 2020
  3. DEFERASIROX. [Suspect]
     Active Substance: DEFERASIROX
     Dosage: 1250 MILLIGRAM, DAILY
     Route: 065
     Dates: start: 2020
  4. DEFERASIROX. [Suspect]
     Active Substance: DEFERASIROX
     Dosage: 250 MILLIGRAM
     Route: 065
     Dates: start: 2020

REACTIONS (3)
  - Gastroenteritis [Unknown]
  - Type I hypersensitivity [Recovered/Resolved]
  - Haemolysis [Unknown]

NARRATIVE: CASE EVENT DATE: 2020
